FAERS Safety Report 24895555 (Version 2)
Quarter: 2025Q1

REPORT INFORMATION
  Report Type: Spontaneous
  Country: JP (occurrence: JP)
  Receive Date: 20250128
  Receipt Date: 20250207
  Transmission Date: 20250408
  Serious: Yes (Hospitalization)
  Sender: TEVA
  Company Number: JP-TEVA-VS-3289349

PATIENT
  Age: 70 Year
  Sex: Female

DRUGS (17)
  1. PREDNISOLONE [Suspect]
     Active Substance: PREDNISOLONE
     Indication: Erythema multiforme
     Route: 048
     Dates: start: 2023, end: 2023
  2. PREDNISOLONE [Suspect]
     Active Substance: PREDNISOLONE
     Indication: Erythema multiforme
     Route: 065
     Dates: start: 2023, end: 2023
  3. OXALIPLATIN [Suspect]
     Active Substance: OXALIPLATIN
     Indication: Anal cancer
     Route: 065
     Dates: start: 202110, end: 202210
  4. CLOBETASOL PROPIONATE [Suspect]
     Active Substance: CLOBETASOL PROPIONATE
     Indication: Erythema multiforme
     Route: 065
     Dates: start: 2023
  5. METHYLPREDNISOLONE [Suspect]
     Active Substance: METHYLPREDNISOLONE
     Indication: Erythema multiforme
     Dosage: FOR THREE SUCCESSIVE DAYS
     Route: 065
     Dates: start: 2023
  6. IRINOTECAN [Suspect]
     Active Substance: IRINOTECAN
     Indication: Anal cancer metastatic
     Route: 065
     Dates: start: 202110, end: 202210
  7. PANITUMUMAB [Suspect]
     Active Substance: PANITUMUMAB
     Indication: Anal cancer
     Route: 065
     Dates: start: 202110, end: 202210
  8. PEMBROLIZUMAB [Suspect]
     Active Substance: PEMBROLIZUMAB
     Indication: Anal cancer
     Route: 065
     Dates: start: 202212, end: 202305
  9. BETAMETHASONE BUTYRATE PROPIONATE [Suspect]
     Active Substance: BETAMETHASONE BUTYRATE PROPIONATE
     Indication: Erythema multiforme
     Route: 061
     Dates: start: 2023, end: 2023
  10. CAPECITABINE [Suspect]
     Active Substance: CAPECITABINE
     Indication: Anal cancer metastatic
     Route: 065
     Dates: start: 202110, end: 202210
  11. LEUCOVORIN [Suspect]
     Active Substance: LEUCOVORIN\LEUCOVORIN CALCIUM
     Indication: Anal cancer metastatic
     Route: 065
     Dates: start: 202110, end: 202210
  12. LEUCOVORIN [Suspect]
     Active Substance: LEUCOVORIN\LEUCOVORIN CALCIUM
     Indication: Anal cancer metastatic
     Route: 065
     Dates: start: 202110, end: 202210
  13. BEVACIZUMAB [Suspect]
     Active Substance: BEVACIZUMAB
     Indication: Anal cancer metastatic
     Route: 065
     Dates: start: 202110, end: 202210
  14. TRIFLURIDINE AND TIPIRACIL [Suspect]
     Active Substance: TIPIRACIL HYDROCHLORIDE\TRIFLURIDINE
     Indication: Anal cancer
     Route: 065
     Dates: start: 202110, end: 202210
  15. CETUXIMAB [Suspect]
     Active Substance: CETUXIMAB
     Indication: Anal cancer metastatic
     Route: 065
     Dates: start: 202110, end: 202210
  16. FLUOROURACIL [Suspect]
     Active Substance: FLUOROURACIL
     Indication: Anal cancer metastatic
     Route: 065
     Dates: start: 202110, end: 202210
  17. FLUOROURACIL [Suspect]
     Active Substance: FLUOROURACIL
     Indication: Anal cancer metastatic
     Route: 065
     Dates: start: 202110, end: 202210

REACTIONS (2)
  - Erythema multiforme [Recovered/Resolved]
  - Drug ineffective [Unknown]

NARRATIVE: CASE EVENT DATE: 20230401
